FAERS Safety Report 23952216 (Version 1)
Quarter: 2024Q2

REPORT INFORMATION
  Report Type: Spontaneous
  Country: IT (occurrence: IT)
  Receive Date: 20240607
  Receipt Date: 20240607
  Transmission Date: 20240716
  Serious: Yes (Other)
  Sender: FDA-Public Use
  Company Number: IT-PFIZER INC-202400100544

PATIENT
  Age: 62 Year
  Sex: Female

DRUGS (1)
  1. TAVOR (LORAZEPAM) [Suspect]
     Active Substance: LORAZEPAM
     Dosage: HALF 2.5 TABLET
     Route: 048

REACTIONS (12)
  - Angina pectoris [Unknown]
  - Drug effect less than expected [Unknown]
  - Sense of oppression [Unknown]
  - Insomnia [Unknown]
  - Head discomfort [Unknown]
  - Malaise [Unknown]
  - Hyperhidrosis [Unknown]
  - Illness [Unknown]
  - Dizziness [Unknown]
  - Heart rate irregular [Recovered/Resolved]
  - Presyncope [Recovered/Resolved]
  - Feeling drunk [Unknown]
